FAERS Safety Report 24218918 (Version 3)
Quarter: 2024Q4

REPORT INFORMATION
  Report Type: Spontaneous
  Country: US (occurrence: US)
  Receive Date: 20240816
  Receipt Date: 20241114
  Transmission Date: 20250115
  Serious: Yes (Hospitalization, Other)
  Sender: SANOFI AVENTIS
  Company Number: US-SANOFI-02175065

PATIENT
  Age: 51 Year
  Sex: Female
  Weight: 53.52 kg

DRUGS (1)
  1. DUPIXENT [Suspect]
     Active Substance: DUPILUMAB
     Indication: Asthma
     Dosage: 300 MG, QOW
     Route: 058

REACTIONS (8)
  - Pneumonia [Unknown]
  - Carbon dioxide increased [Unknown]
  - Chronic obstructive pulmonary disease [Unknown]
  - Urinary tract infection [Unknown]
  - Irritability [Unknown]
  - Fatigue [Unknown]
  - Accidental exposure to product [Unknown]
  - Exposure via skin contact [Unknown]

NARRATIVE: CASE EVENT DATE: 20240801
